FAERS Safety Report 6917116-8 (Version None)
Quarter: 2010Q3

REPORT INFORMATION
  Report Type: 
  Country: None (occurrence: None)
  Receive Date: 20100810
  Receipt Date: 20100802
  Transmission Date: 20110219
  Serious: Yes (Hospitalization)
  Sender: FDA-Public Use
  Company Number: B0668818A

PATIENT
  Sex: Female
  Weight: 34 kg

DRUGS (7)
  1. TYKERB [Suspect]
     Indication: BREAST CANCER
     Dosage: 1250MG PER DAY
     Route: 048
     Dates: start: 20090911, end: 20090915
  2. CAPECITABINE [Concomitant]
     Dosage: 2400MG PER DAY
     Route: 048
     Dates: start: 20090911, end: 20090924
  3. RISUMIC [Concomitant]
     Indication: HYPOTENSION
     Route: 048
     Dates: end: 20090925
  4. ZOMETA [Concomitant]
     Dates: start: 20090911, end: 20090911
  5. TAKEPRON [Concomitant]
     Indication: PROPHYLAXIS
     Route: 048
     Dates: start: 20090911, end: 20090927
  6. PURSENNID [Concomitant]
     Indication: CONSTIPATION PROPHYLAXIS
     Route: 048
     Dates: start: 20090911, end: 20090927
  7. GASMOTIN [Concomitant]
     Indication: PROPHYLAXIS
     Route: 048
     Dates: start: 20090911, end: 20090926

REACTIONS (1)
  - PNEUMONIA BACTERIAL [None]
